FAERS Safety Report 4649257-2 (Version None)
Quarter: 2005Q2

REPORT INFORMATION
  Report Type: 
  Country: None (occurrence: None)
  Receive Date: 20050429
  Receipt Date: 20050422
  Transmission Date: 20051028
  Serious: Yes (Hospitalization)
  Sender: FDA-Public Use
  Company Number: US-MERCK-0504USA04320

PATIENT
  Age: 55 Year
  Sex: Male

DRUGS (4)
  1. ZOCOR [Suspect]
     Route: 048
  2. TOPROL-XL [Concomitant]
     Route: 065
  3. LANOXIN [Concomitant]
     Route: 065
  4. AMIODARONE [Concomitant]
     Route: 065

REACTIONS (2)
  - CHEST PAIN [None]
  - PLATELET COUNT DECREASED [None]
